FAERS Safety Report 9737482 (Version 1)
Quarter: 2013Q4

REPORT INFORMATION
  Report Type: Spontaneous
  Country: IT (occurrence: IT)
  Receive Date: 20131206
  Receipt Date: 20131206
  Transmission Date: 20140711
  Serious: Yes (Hospitalization, Other)
  Sender: FDA-Public Use
  Company Number: IT-GILEAD-2013-0088995

PATIENT
  Age: 68 Year
  Sex: Male

DRUGS (3)
  1. RANOLAZINE [Suspect]
     Indication: MYOCARDIAL ISCHAEMIA
     Dosage: 375 MG, BID
     Route: 048
     Dates: start: 20121226, end: 20130110
  2. DUOPLAVIN [Concomitant]
     Dosage: UNK
     Dates: end: 20121230
  3. TOTALIP [Concomitant]
     Dosage: UNK
     Dates: end: 20121230

REACTIONS (1)
  - Hepatitis cholestatic [Recovering/Resolving]
